FAERS Safety Report 9381372 (Version 1)
Quarter: 2013Q3

REPORT INFORMATION
  Report Type: Spontaneous
  Country: US (occurrence: US)
  Receive Date: 20130703
  Receipt Date: 20130703
  Transmission Date: 20140515
  Serious: Yes (Life-Threatening, Hospitalization)
  Sender: FDA-Public Use
  Company Number: US-MYLANLABS-2013S1014102

PATIENT
  Age: 53 Year
  Sex: Male

DRUGS (3)
  1. PANTOPRAZOLE [Suspect]
     Indication: PROPHYLAXIS
     Route: 048
  2. DILTIAZEM [Concomitant]
     Indication: ATRIAL FIBRILLATION
     Route: 042
  3. HEPARIN [Concomitant]
     Indication: ANTICOAGULANT THERAPY
     Route: 042

REACTIONS (2)
  - Torsade de pointes [Recovered/Resolved]
  - Hypomagnesaemia [Unknown]
